FAERS Safety Report 10927222 (Version 1)
Quarter: 2015Q1

REPORT INFORMATION
  Report Type: Spontaneous
  Country: US (occurrence: None)
  Receive Date: 20150316
  Receipt Date: 20150316
  Transmission Date: 20150721
  Serious: Yes (Life-Threatening, Other)
  Sender: FDA-Public Use
  Company Number: 8015248

PATIENT
  Sex: Female
  Weight: 2 kg

DRUGS (1)
  1. LEVOTHYROXINE [Suspect]
     Active Substance: LEVOTHYROXINE
     Indication: POST PROCEDURAL HYPOTHYROIDISM
     Dosage: PRODUCT TAKEN BY MOTHER

REACTIONS (6)
  - Congenital pulmonary hypertension [None]
  - Hepatosplenomegaly neonatal [None]
  - Congestive cardiomyopathy [None]
  - Foetal exposure during pregnancy [None]
  - Basedow^s disease [None]
  - Congenital hypothyroidism [None]
